FAERS Safety Report 12789715 (Version 1)
Quarter: 2016Q3

REPORT INFORMATION
  Report Type: Spontaneous
  Country: US (occurrence: US)
  Receive Date: 20160928
  Receipt Date: 20160928
  Transmission Date: 20161109
  Serious: No
  Sender: FDA-Public Use
  Company Number: US-BAYER-2016-182561

PATIENT
  Age: 73 Year

DRUGS (1)
  1. CHLOR-TRIMETON 12 HOUR [Suspect]
     Active Substance: CHLORPHENIRAMINE MALEATE

REACTIONS (1)
  - Product use issue [Unknown]
